FAERS Safety Report 11680021 (Version 2)
Quarter: 2015Q4

REPORT INFORMATION
  Report Type: Spontaneous
  Country: US (occurrence: US)
  Receive Date: 20151027
  Receipt Date: 20151104
  Transmission Date: 20160304
  Serious: No
  Sender: FDA-Public Use
  Company Number: US-ELI_LILLY_AND_COMPANY-US201010002305

PATIENT
  Age: 85 Year
  Sex: Female

DRUGS (1)
  1. FORTEO [Suspect]
     Active Substance: TERIPARATIDE
     Indication: OSTEOPOROSIS
     Dosage: 20 UG, UNK
     Dates: end: 2010

REACTIONS (7)
  - Limb injury [Unknown]
  - Upper limb fracture [Unknown]
  - Pain in extremity [Unknown]
  - Wrist fracture [Unknown]
  - Arthralgia [Unknown]
  - Impaired healing [Unknown]
  - Wrist fracture [Unknown]

NARRATIVE: CASE EVENT DATE: 200912
